FAERS Safety Report 9338487 (Version 2)
Quarter: 2013Q2

REPORT INFORMATION
  Report Type: Spontaneous
  Country: FR (occurrence: FR)
  Receive Date: 20130610
  Receipt Date: 20130611
  Transmission Date: 20140414
  Serious: Yes (Life-Threatening, Hospitalization)
  Sender: FDA-Public Use
  Company Number: FR-JNJFOC-20130520146

PATIENT
  Age: 63 Year
  Sex: Female

DRUGS (6)
  1. STELARA [Suspect]
     Indication: PSORIASIS
     Route: 058
     Dates: end: 201211
  2. ENBREL [Suspect]
     Indication: PSORIASIS
     Route: 065
  3. LEVOTHYROX [Concomitant]
     Indication: HYPOTHYROIDISM
     Route: 065
  4. METHOTREXATE [Concomitant]
     Indication: PSORIASIS
     Route: 065
  5. RAPTIVA [Concomitant]
     Indication: PSORIASIS
     Route: 065
  6. NEORAL [Concomitant]
     Indication: PSORIASIS
     Route: 065
     Dates: start: 2009

REACTIONS (1)
  - Glioblastoma [Not Recovered/Not Resolved]
